FAERS Safety Report 6292213-1 (Version None)
Quarter: 2009Q3

REPORT INFORMATION
  Report Type: 
  Country: None (occurrence: None)
  Receive Date: 20090731
  Receipt Date: 20090723
  Transmission Date: 20100115
  Serious: Yes (Other)
  Sender: FDA-Public Use
  Company Number: US-RANBAXY-2009US-23399

PATIENT

DRUGS (5)
  1. ISOTRETINOIN [Suspect]
     Indication: DRUG USE FOR UNKNOWN INDICATION
     Dosage: 10 MG, QPM
     Route: 048
     Dates: start: 20081130, end: 20090407
  2. ISOTRETINOIN [Suspect]
     Dosage: 20 MG, QAM
     Route: 048
     Dates: start: 20081130, end: 20090407
  3. ISOTRETINOIN [Suspect]
     Dosage: 20 MG, QPM
     Route: 048
     Dates: start: 20081130, end: 20090407
  4. CLARAVIS [Suspect]
     Indication: DRUG USE FOR UNKNOWN INDICATION
     Dosage: 10 MG, UNK
     Route: 048
  5. CLARAVIS [Suspect]
     Dosage: 20 MG, UNK
     Route: 048

REACTIONS (1)
  - PREGNANCY [None]
